FAERS Safety Report 18338106 (Version 2)
Quarter: 2020Q4

REPORT INFORMATION
  Report Type: Spontaneous
  Country: US (occurrence: US)
  Receive Date: 20201002
  Receipt Date: 20201006
  Transmission Date: 20210113
  Serious: Yes (Hospitalization, Other)
  Sender: FDA-Public Use
  Company Number: US-PFIZER INC-2020379504

PATIENT
  Age: 63 Year
  Sex: Female

DRUGS (2)
  1. IBRANCE [Suspect]
     Active Substance: PALBOCICLIB
     Indication: BREAST CANCER FEMALE
     Dosage: 125 MG, CYCLIC (21 DAYS ON THEN 7 DAYS OFF)
     Route: 048
     Dates: start: 20200725
  2. AMOXCILLIN [Concomitant]
     Active Substance: AMOXICILLIN
     Dosage: UNK

REACTIONS (2)
  - COVID-19 [Unknown]
  - Rash [Unknown]

NARRATIVE: CASE EVENT DATE: 2020
